FAERS Safety Report 8236400 (Version 6)
Quarter: 2021Q1

REPORT INFORMATION
  Report Type: Report from Study
  Country: US (occurrence: US)
  Receive Date: 20111108
  Receipt Date: 20210305
  Transmission Date: 20210420
  Serious: Yes (Death, Other)
  Sender: FDA-Public Use
  Company Number: US-PFIZER INC-2011261687

PATIENT
  Age: 75 Year
  Sex: Male

DRUGS (15)
  1. ZOFRAN [Concomitant]
     Active Substance: ONDANSETRON HYDROCHLORIDE
     Indication: VOMITING
  2. PREDNISONE. [Suspect]
     Active Substance: PREDNISONE
     Indication: PROSTATE CANCER METASTATIC
     Dosage: 5 MG, 2X/DAY
     Route: 048
     Dates: start: 20110723, end: 20111024
  3. LEVOSALBUTAMOL [Concomitant]
     Active Substance: LEVALBUTEROL
     Dosage: 1.25 MG, EVERY 6 HOURS
     Route: 055
  4. SENOKOT?S [Concomitant]
     Active Substance: DOCUSATE SODIUM\SENNOSIDES
     Indication: CONSTIPATION
     Dosage: 2 TABLETS, 2X/DAY, AS NEEDED
     Route: 048
  5. TAMSULOSIN HYDROCHLORIDE. [Concomitant]
     Active Substance: TAMSULOSIN HYDROCHLORIDE
     Dosage: 0.4 MG, DAILY
     Route: 048
  6. SUNITINIB MALATE. [Suspect]
     Active Substance: SUNITINIB MALATE
     Indication: PROSTATE CANCER METASTATIC
     Dosage: 37.5 MG, DAILY 2 WEEKS ON/ 1 WEEK OFF
     Route: 048
     Dates: start: 20111011
  7. IPRATROPIUM BROMIDE. [Concomitant]
     Active Substance: IPRATROPIUM BROMIDE
     Dosage: 2.5 ML, EVERY 6 HOURS
     Route: 055
  8. ZOFRAN [Concomitant]
     Active Substance: ONDANSETRON HYDROCHLORIDE
     Indication: NAUSEA
     Dosage: 8 MG, EVERY 8 HOURS, AS NEEDED
     Route: 042
  9. ABIRATERONE ACETATE. [Suspect]
     Active Substance: ABIRATERONE ACETATE
     Indication: PROSTATE CANCER METASTATIC
     Dosage: 1000 MG, 1X/DAY
     Route: 048
     Dates: start: 20110723, end: 20111024
  10. TYLENOL [Concomitant]
     Active Substance: ACETAMINOPHEN
     Indication: PYREXIA
     Dosage: 650 MG, EVERY 4 HOURS, AS NEEDED
     Route: 048
  11. ATORVASTATIN [Concomitant]
     Active Substance: ATORVASTATIN
     Dosage: 10 MG, DAILY
     Route: 048
  12. LOVENOX [Concomitant]
     Active Substance: ENOXAPARIN SODIUM
     Dosage: 40 MG, DAILY
     Route: 058
  13. LEVOFLOXACIN. [Concomitant]
     Active Substance: LEVOFLOXACIN
     Dosage: 750 MG, DAILY
     Route: 042
  14. OXYCODONE [Concomitant]
     Active Substance: OXYCODONE
     Indication: PAIN
     Dosage: 5 MG, EVERY 4 HOURS, AS NEEDED
     Route: 048
  15. ZOSYN [Concomitant]
     Active Substance: PIPERACILLIN SODIUM\TAZOBACTAM SODIUM
     Dosage: 3.375 G, EVERY 6 HOURS

REACTIONS (1)
  - Pneumonia [Fatal]

NARRATIVE: CASE EVENT DATE: 20111024
